FAERS Safety Report 5957549-X (Version None)
Quarter: 2008Q4

REPORT INFORMATION
  Report Type: 
  Country: None (occurrence: None)
  Receive Date: 20081117
  Receipt Date: 20081117
  Transmission Date: 20090506
  Serious: Yes (Death)
  Sender: FDA-Public Use
  Company Number: None

PATIENT
  Age: 74 Year
  Sex: Female
  Weight: 99 kg

DRUGS (1)
  1. BOVINE THROMBIN 5000 UNITS KING PHARMACEUTICALS [Suspect]
     Indication: KNEE ARTHROPLASTY
     Dosage: 5000 UNITS ONCE TOP
     Route: 061
     Dates: start: 20080925, end: 20080925

REACTIONS (5)
  - COAGULOPATHY [None]
  - INTERNATIONAL NORMALISED RATIO INCREASED [None]
  - POST PROCEDURAL HAEMATOMA [None]
  - SUBDURAL HAEMATOMA [None]
  - WOUND INFECTION [None]
